FAERS Safety Report 25940700 (Version 1)
Quarter: 2025Q4

REPORT INFORMATION
  Report Type: Spontaneous
  Country: US (occurrence: None)
  Receive Date: 20251019
  Receipt Date: 20251019
  Transmission Date: 20260117
  Serious: Yes (Hospitalization)
  Sender: FDA-CTU
  Company Number: None

PATIENT
  Sex: Female

DRUGS (2)
  1. BEXAROTENE [Suspect]
     Active Substance: BEXAROTENE
     Indication: Benign breast neoplasm
     Dosage: 150 MG DAILY ORAL
     Route: 048
     Dates: start: 20240715
  2. BEXAROTENE [Suspect]
     Active Substance: BEXAROTENE
     Indication: Cutaneous T-cell lymphoma

REACTIONS (2)
  - Therapy interrupted [None]
  - Transient ischaemic attack [None]
